FAERS Safety Report 8968806 (Version 2)
Quarter: 2013Q1

REPORT INFORMATION
  Report Type: Spontaneous
  Country: US (occurrence: US)
  Receive Date: 20121218
  Receipt Date: 20130219
  Transmission Date: 20140127
  Serious: Yes (Hospitalization, Other)
  Sender: FDA-Public Use
  Company Number: US-BRISTOL-MYERS SQUIBB COMPANY-16355968

PATIENT
  Age: 49 Year
  Sex: Male
  Weight: 122.45 kg

DRUGS (4)
  1. ABILIFY [Suspect]
     Indication: SCHIZOPHRENIA
     Dosage: REPORTER BELIEVE START DATE: AUG2010?INT ON:FEB11?PRES#:11621119
     Dates: start: 2011
  2. ABILIFY [Suspect]
     Indication: PSYCHOTIC DISORDER
     Dosage: REPORTER BELIEVE START DATE: AUG2010?INT ON:FEB11?PRES#:11621119
     Dates: start: 2011
  3. ABILIFY [Suspect]
     Indication: BIPOLAR DISORDER
     Dosage: REPORTER BELIEVE START DATE: AUG2010?INT ON:FEB11?PRES#:11621119
     Dates: start: 2011
  4. LATUDA [Concomitant]

REACTIONS (5)
  - Psychotic disorder [Unknown]
  - Weight increased [Unknown]
  - Somnolence [Unknown]
  - Hunger [Unknown]
  - Weight decreased [Unknown]
